FAERS Safety Report 9026860 (Version 2)
Quarter: 2013Q1

REPORT INFORMATION
  Report Type: Report from Study
  Country: GB (occurrence: GB)
  Receive Date: 20130123
  Receipt Date: 20130322
  Transmission Date: 20140127
  Serious: Yes (Hospitalization)
  Sender: FDA-Public Use
  Company Number: GB-VERTEX PHARMACEUTICALS INC.-2013-000952

PATIENT
  Age: 34 Year
  Sex: Male
  Weight: 133 kg

DRUGS (10)
  1. BLINDED PRE-TREATMENT [Suspect]
     Indication: HEPATITIS C
     Dosage: DOSAGE FORM: TABLET
     Route: 048
     Dates: start: 20120910, end: 20121202
  2. BLINDED TMC435 [Suspect]
     Indication: HEPATITIS C
     Dosage: DOSAGE FORM: TABLET
     Route: 048
     Dates: start: 20120910, end: 20121202
  3. TELAPREVIR [Suspect]
     Indication: HEPATITIS C
     Dosage: DOSAGE FORM: TABLET
     Route: 048
     Dates: start: 20120910, end: 20121202
  4. RIBAVIRIN [Suspect]
     Indication: HEPATITIS C
     Dosage: DOSAGE FORM: TABLET
     Route: 048
     Dates: start: 20120910
  5. PEGINTERFERON ALFA-2A [Suspect]
     Indication: HEPATITIS C
     Dosage: DOSAGE FORM: INJECTION
     Route: 058
     Dates: start: 20120910
  6. FACTOR VIII (ANTIHAEMOPHILIC FACTOR) [Concomitant]
     Indication: HAEMOPHILIA
     Dosage: UNK
     Route: 042
  7. PROPRANOLOL [Concomitant]
     Indication: PROPHYLAXIS
     Dosage: 40 MG, BID
     Route: 048
  8. CODEINE [Concomitant]
     Indication: ANALGESIC THERAPY
     Dosage: 30 MG, PRN
     Route: 048
  9. PARACETAMOL [Concomitant]
     Indication: MYALGIA
     Dosage: DOSAGE FORM: UNSPECIFIED
     Route: 048
  10. METOCLOPRAMIDE [Concomitant]
     Indication: NAUSEA
     Dosage: 10 MG, TID
     Route: 048
     Dates: start: 20120925

REACTIONS (3)
  - Gastroenteritis viral [Recovered/Resolved]
  - Dyspnoea [Recovered/Resolved]
  - Vomiting [Recovered/Resolved]
